FAERS Safety Report 8217448-X (Version None)
Quarter: 2012Q1

REPORT INFORMATION
  Report Type: 
  Country: None (occurrence: None)
  Receive Date: 20120316
  Receipt Date: 20120302
  Transmission Date: 20120608
  Serious: Yes (Death, Hospitalization)
  Sender: FDA-Public Use
  Company Number: UTC-015775

PATIENT
  Age: 65 Year
  Sex: Female
  Weight: 85.45 kg

DRUGS (4)
  1. TYVASO [Suspect]
     Indication: COR PULMONALE CHRONIC
     Dosage: 18-72 MICROGRAMS (4 IN 1 D),INHALATION
     Route: 055
     Dates: start: 20110620
  2. COUMADIN [Concomitant]
  3. DIURETICS (DIURETICS) [Concomitant]
  4. REVATIO [Concomitant]

REACTIONS (3)
  - FALL [None]
  - UPPER LIMB FRACTURE [None]
  - CARDIAC FAILURE CONGESTIVE [None]
